FAERS Safety Report 17210463 (Version 1)
Quarter: 2019Q4

REPORT INFORMATION
  Report Type: Spontaneous
  Country: ES (occurrence: ES)
  Receive Date: 20191227
  Receipt Date: 20191227
  Transmission Date: 20200122
  Serious: Yes (Death, Other)
  Sender: FDA-Public Use
  Company Number: ES-ALEXION PHARMACEUTICALS INC.-A201919728

PATIENT
  Age: 49 Year
  Sex: Male

DRUGS (2)
  1. SOLIRIS [Suspect]
     Active Substance: ECULIZUMAB
     Dosage: 1200 MG, QW
     Route: 065
     Dates: start: 201908, end: 20191018
  2. SOLIRIS [Suspect]
     Active Substance: ECULIZUMAB
     Indication: ATYPICAL HAEMOLYTIC URAEMIC SYNDROME
     Dosage: UNK
     Route: 065
     Dates: start: 20190118

REACTIONS (8)
  - Sepsis [Fatal]
  - Food refusal [Unknown]
  - Nervous system disorder [Fatal]
  - Drug level below therapeutic [Unknown]
  - Pneumonia aspiration [Fatal]
  - Thrombotic microangiopathy [Unknown]
  - Refusal of treatment by patient [Unknown]
  - Gait disturbance [Unknown]

NARRATIVE: CASE EVENT DATE: 2019
